FAERS Safety Report 18822404 (Version 1)
Quarter: 2021Q1

REPORT INFORMATION
  Report Type: Spontaneous
  Country: FR (occurrence: FR)
  Receive Date: 20210202
  Receipt Date: 20210202
  Transmission Date: 20210419
  Serious: Yes (Life-Threatening)
  Sender: FDA-Public Use
  Company Number: FR-PFIZER INC-2021073255

PATIENT
  Age: 49 Year
  Sex: Female
  Weight: 93 kg

DRUGS (2)
  1. ARACYTINE [Suspect]
     Active Substance: CYTARABINE
     Indication: ACUTE LEUKAEMIA
     Dosage: 200 MG/M2, 1X/DAY
     Route: 041
     Dates: start: 20201211, end: 20201217
  2. CERUBIDINE [Suspect]
     Active Substance: DAUNORUBICIN HYDROCHLORIDE
     Indication: ACUTE LEUKAEMIA
     Dosage: 90 MG/M2, 1X/DAY
     Route: 041
     Dates: start: 20201211, end: 20201213

REACTIONS (2)
  - Acute motor axonal neuropathy [Recovering/Resolving]
  - Rash [Recovering/Resolving]

NARRATIVE: CASE EVENT DATE: 20201227
